FAERS Safety Report 20745830 (Version 3)
Quarter: 2022Q2

REPORT INFORMATION
  Report Type: Spontaneous
  Country: US (occurrence: US)
  Receive Date: 20220425
  Receipt Date: 20220504
  Transmission Date: 20220721
  Serious: No
  Sender: FDA-Public Use
  Company Number: US-TAKEDA-2022TUS027224

PATIENT
  Age: 67 Year
  Sex: Female

DRUGS (2)
  1. LIVTENCITY [Suspect]
     Active Substance: MARIBAVIR
     Indication: Cytomegalovirus infection
     Dosage: 40 MILLIGRAM, QD
     Route: 065
  2. LIVTENCITY [Suspect]
     Active Substance: MARIBAVIR
     Indication: Cardiac disorder
     Dosage: 200 MILLIGRAM, BID
     Route: 048

REACTIONS (2)
  - Cytomegalovirus test positive [Unknown]
  - Drug ineffective [Unknown]
